FAERS Safety Report 4277422-5 (Version None)
Quarter: 2004Q1

REPORT INFORMATION
  Report Type: 
  Country: None (occurrence: None)
  Receive Date: 20040122
  Receipt Date: 20040112
  Transmission Date: 20041129
  Serious: Yes (Life-Threatening)
  Sender: FDA-Public Use
  Company Number: NL-GLAXOSMITHKLINE-B0319555A

PATIENT
  Age: 43 Year
  Sex: Male

DRUGS (3)
  1. LAMIVUDINE [Suspect]
     Dosage: 300MG PER DAY
     Dates: start: 20020101
  2. EFAVIRENZ [Concomitant]
     Dosage: 600MG PER DAY
     Dates: start: 20020101
  3. TENOFOVIR DISOPROXIL FUMARATE [Concomitant]
     Dosage: 2454MG PER DAY
     Dates: start: 20020101

REACTIONS (2)
  - CIRCULATORY COLLAPSE [None]
  - VENTRICULAR TACHYCARDIA [None]
